FAERS Safety Report 5334079-X (Version None)
Quarter: 2007Q2

REPORT INFORMATION
  Report Type: 
  Country: None (occurrence: None)
  Receive Date: 20070524
  Receipt Date: 20070517
  Transmission Date: 20071010
  Serious: Yes (Hospitalization)
  Sender: FDA-Public Use
  Company Number: US-GILEAD-2007-0012009

PATIENT
  Sex: Female
  Weight: 141.65 kg

DRUGS (23)
  1. TRUVADA [Suspect]
     Indication: HIV INFECTION
     Route: 048
     Dates: start: 20050810, end: 20070412
  2. FUZEON [Concomitant]
     Indication: HIV INFECTION
     Route: 058
     Dates: start: 20051103, end: 20070413
  3. PREZISTA [Concomitant]
     Indication: HIV INFECTION
     Route: 048
     Dates: start: 20060320, end: 20070413
  4. NORVIR [Concomitant]
     Indication: HIV INFECTION
     Route: 048
     Dates: start: 20060820, end: 20070413
  5. ACYCLOVIR [Concomitant]
  6. AMBIEN [Concomitant]
  7. BACTROBAN [Concomitant]
     Route: 061
  8. CELEXA [Concomitant]
  9. DARVOCET-N 100 [Concomitant]
  10. DIFLUCAN [Concomitant]
  11. FLONASE [Concomitant]
     Route: 055
  12. LASIX [Concomitant]
  13. LISINOPRIL [Concomitant]
  14. MEPRON [Concomitant]
  15. PRENATAL FORMULA [Concomitant]
  16. ROBITUSSIN-DAC [Concomitant]
     Route: 048
  17. TRAZODONE HYDROCHLORIDE [Concomitant]
  18. XANAX [Concomitant]
  19. ZITHROMAX [Concomitant]
  20. ZOVIRAX [Concomitant]
     Route: 061
  21. VITAMIN CAP [Concomitant]
     Dates: start: 20070410
  22. CELEBREX [Concomitant]
     Dates: start: 20070410
  23. PROTONIX [Concomitant]
     Route: 048

REACTIONS (2)
  - LACTIC ACIDOSIS [None]
  - TRACHEOBRONCHITIS [None]
